FAERS Safety Report 9541938 (Version 1)
Quarter: 2013Q3

REPORT INFORMATION
  Report Type: Spontaneous
  Country: US (occurrence: None)
  Receive Date: 20130919
  Receipt Date: 20130919
  Transmission Date: 20140515
  Serious: Yes (Disabling)
  Sender: FDA-Public Use
  Company Number: None

PATIENT
  Age: 48 Year
  Sex: Female
  Weight: 107.05 kg

DRUGS (1)
  1. CIPROFLOXACIN [Suspect]
     Indication: PARONYCHIA
     Dosage: 1 TABLET
     Route: 048
     Dates: start: 20130904, end: 20130914

REACTIONS (15)
  - Oedema peripheral [None]
  - Oedema peripheral [None]
  - Oedema peripheral [None]
  - Pruritus [None]
  - Alopecia [None]
  - Bone pain [None]
  - Decreased appetite [None]
  - Formication [None]
  - Urine output decreased [None]
  - Mood swings [None]
  - Pain in extremity [None]
  - Hypoaesthesia [None]
  - Vulvovaginal mycotic infection [None]
  - No therapeutic response [None]
  - Activities of daily living impaired [None]
